FAERS Safety Report 16655919 (Version 2)
Quarter: 2019Q3

REPORT INFORMATION
  Report Type: Report from Study
  Country: US (occurrence: US)
  Receive Date: 20190801
  Receipt Date: 20190917
  Transmission Date: 20191004
  Serious: No
  Sender: FDA-Public Use
  Company Number: US-AMGEN-USASP2019120308

PATIENT
  Age: 90 Year
  Sex: Female

DRUGS (1)
  1. PROLIA [Suspect]
     Active Substance: DENOSUMAB
     Indication: OSTEOPOROSIS POSTMENOPAUSAL
     Dosage: 60 MILLIGRAM, Q6MO
     Route: 065
     Dates: start: 20190223, end: 2019

REACTIONS (9)
  - Formication [Unknown]
  - Throat tightness [Unknown]
  - Rash pruritic [Unknown]
  - Pharyngeal swelling [Unknown]
  - Scab [Unknown]
  - Hypoacusis [Unknown]
  - Toothache [Recovered/Resolved]
  - Rash macular [Unknown]
  - Abdominal pain upper [Unknown]

NARRATIVE: CASE EVENT DATE: 2019
